FAERS Safety Report 25199703 (Version 4)
Quarter: 2025Q4

REPORT INFORMATION
  Report Type: Report from Study
  Country: CN (occurrence: CN)
  Receive Date: 20250415
  Receipt Date: 20251029
  Transmission Date: 20260118
  Serious: Yes (Other)
  Sender: NOVARTIS
  Company Number: CN-002147023-NVSC2025CN061808

PATIENT
  Age: 53 Year
  Sex: Female

DRUGS (5)
  1. TAFINLAR [Suspect]
     Active Substance: DABRAFENIB MESYLATE
     Indication: BRAF V600E mutation positive
     Dosage: 150 DOSAGE FORM (150 CAPSULE)
     Route: 048
     Dates: start: 20241218, end: 20250312
  2. TAFINLAR [Suspect]
     Active Substance: DABRAFENIB MESYLATE
     Dosage: 225 DOSAGE FORM (225 CAPSULE)
     Route: 048
     Dates: start: 20250313
  3. TAFINLAR [Suspect]
     Active Substance: DABRAFENIB MESYLATE
     Dosage: UNK, 3RD DOSAGE REGIMEN
     Route: 065
     Dates: start: 202504
  4. TAFINLAR [Suspect]
     Active Substance: DABRAFENIB MESYLATE
     Dosage: 75 DOSAGE FORM (CAPSULE)
     Route: 048
     Dates: end: 20250614
  5. TAFINLAR [Suspect]
     Active Substance: DABRAFENIB MESYLATE
     Dosage: 0 DOSAGE FORM (CAPSULE)
     Route: 048
     Dates: start: 20250615

REACTIONS (2)
  - Panniculitis [Recovered/Resolved]
  - Pyrexia [Recovered/Resolved]

NARRATIVE: CASE EVENT DATE: 20250201
